FAERS Safety Report 16344158 (Version 5)
Quarter: 2020Q1

REPORT INFORMATION
  Report Type: Report from Study
  Country: ES (occurrence: ES)
  Receive Date: 20190522
  Receipt Date: 20200127
  Transmission Date: 20200409
  Serious: Yes (Death, Life-Threatening)
  Sender: FDA-Public Use
  Company Number: ES-PFIZER INC-2019216576

PATIENT
  Age: 14 Year
  Sex: Male

DRUGS (13)
  1. INOTUZUMAB OZOGAMICIN [Suspect]
     Active Substance: INOTUZUMAB OZOGAMICIN
     Indication: ACUTE LYMPHOCYTIC LEUKAEMIA
     Dosage: 0.89 MG, UNK
     Dates: start: 20190319, end: 20190403
  2. METHOTREXATE SODIUM. [Suspect]
     Active Substance: METHOTREXATE SODIUM
     Indication: ACUTE LYMPHOCYTIC LEUKAEMIA
     Dosage: 15 MG, SINGLE
     Dates: start: 20190424, end: 20190424
  3. MEROPENEM. [Concomitant]
     Active Substance: MEROPENEM
     Indication: COLITIS
     Dosage: 2 G, 3X/DAY (Q8H)
     Route: 042
     Dates: start: 20190515, end: 20190524
  4. CYCLOPHOSPHAMIDE. [Suspect]
     Active Substance: CYCLOPHOSPHAMIDE
     Indication: ACUTE LYMPHOCYTIC LEUKAEMIA
     Dosage: 400 MG/M2, SINGLE
     Dates: start: 20190514, end: 20190514
  5. AMFO B [Concomitant]
     Indication: INFECTION PROPHYLAXIS
     Dosage: 180 MG, DAILY (QD)
     Route: 042
     Dates: start: 20190319, end: 20190522
  6. METHYLPREDNISOLONE SODIUM SUCCINATE. [Suspect]
     Active Substance: METHYLPREDNISOLONE SODIUM SUCCINATE
     Indication: ACUTE LYMPHOCYTIC LEUKAEMIA
     Dosage: 40 MG, UNK
     Dates: start: 20190319
  7. TEICOPLANINA [Concomitant]
     Active Substance: TEICOPLANIN
     Indication: COLITIS
     Dosage: 400 MG, DAILY (QD)
     Route: 042
     Dates: start: 20190515, end: 20190520
  8. MORFINA [MORPHINE] [Concomitant]
     Dosage: 5 MG, AS NEEDED
     Route: 042
     Dates: start: 20190319, end: 20190525
  9. CYTARABINE. [Suspect]
     Active Substance: CYTARABINE
     Indication: ACUTE LYMPHOCYTIC LEUKAEMIA
     Dosage: 30 MG, UNK
     Dates: start: 20190424
  10. METRONIDAZOL [METRONIDAZOLE] [Concomitant]
     Active Substance: METRONIDAZOLE
     Indication: COLITIS
     Dosage: 500 MG, 4X/DAY (Q6H)
     Route: 048
     Dates: start: 20190510, end: 20190517
  11. ACICLOVIR [Concomitant]
     Active Substance: ACYCLOVIR
     Indication: INFECTION PROPHYLAXIS
     Dosage: 400 UNK, 3X/DAY (Q8H)
     Route: 048
     Dates: start: 20190319, end: 20190522
  12. VINCRISTINE [Suspect]
     Active Substance: VINCRISTINE
     Indication: ACUTE LYMPHOCYTIC LEUKAEMIA
     Dosage: UNK, SINGLE
     Dates: start: 20190424, end: 20190424
  13. MORFINA [MORPHINE] [Concomitant]
     Indication: BONE PAIN
     Dosage: 0.040 MG/KG/H (CONTINUOUS INFUSION)
     Route: 042
     Dates: start: 20190311, end: 20190525

REACTIONS (1)
  - Venoocclusive liver disease [Fatal]

NARRATIVE: CASE EVENT DATE: 20190517
